FAERS Safety Report 9556690 (Version 1)
Quarter: 2013Q3

REPORT INFORMATION
  Report Type: Spontaneous
  Country: US (occurrence: US)
  Receive Date: 20130926
  Receipt Date: 20130926
  Transmission Date: 20140515
  Serious: No
  Sender: FDA-Public Use
  Company Number: US-PFIZER INC-2013274546

PATIENT
  Sex: Male
  Weight: 67.12 kg

DRUGS (3)
  1. NITROSTAT [Suspect]
     Indication: OESOPHAGEAL SPASM
     Dosage: 0.4 MG, AS NEEDED
     Route: 060
     Dates: start: 201309
  2. LEVOTHYROXINE [Concomitant]
     Indication: HYPOTHYROIDISM
     Dosage: UNK
  3. PANTOPRAZOLE [Concomitant]
     Indication: GASTROOESOPHAGEAL REFLUX DISEASE
     Dosage: UNK

REACTIONS (2)
  - Off label use [Unknown]
  - Drug ineffective for unapproved indication [Unknown]
